FAERS Safety Report 16410449 (Version 1)
Quarter: 2019Q2

REPORT INFORMATION
  Report Type: Spontaneous
  Country: US (occurrence: US)
  Receive Date: 20190610
  Receipt Date: 20190610
  Transmission Date: 20190711
  Serious: No
  Sender: FDA-Public Use
  Company Number: US-PFIZER INC-2018531559

PATIENT
  Age: 71 Year
  Sex: Female
  Weight: 136 kg

DRUGS (5)
  1. CARBAMAZEPINE. [Suspect]
     Active Substance: CARBAMAZEPINE
     Indication: TRIGEMINAL NEURALGIA
     Dosage: 400 MG, 3X/DAY (200MG; 2 TABLETS IN AM, 2 TABLETS PM AND 2 TABLETS AT BEDTIME)
     Dates: start: 201805
  2. LYRICA [Suspect]
     Active Substance: PREGABALIN
     Dosage: 375 MG, DAILY (2 IN THE MORNING, 1 IN THE AFTERNOON AND 2 IN THE EVENING)
  3. PHENYTOIN SODIUM. [Suspect]
     Active Substance: PHENYTOIN SODIUM
     Indication: TRIGEMINAL NEURALGIA
     Dosage: 500 MG, DAILY (2 CAPSULES IN THE MORNING, 1 CAPSULE IN THE AFTERNOON, 2 CAPSULES AT NIGHT)
     Dates: start: 201805
  4. LYRICA [Suspect]
     Active Substance: PREGABALIN
     Indication: TRIGEMINAL NEURALGIA
     Dosage: 150 MG, 3X/DAY (2 TABS THRICE A DAY)
     Route: 048
  5. LEVOTHYROXINE. [Concomitant]
     Active Substance: LEVOTHYROXINE
     Dosage: UNK

REACTIONS (1)
  - Memory impairment [Unknown]

NARRATIVE: CASE EVENT DATE: 201904
